FAERS Safety Report 11448589 (Version 3)
Quarter: 2015Q4

REPORT INFORMATION
  Report Type: Report from Study
  Country: US (occurrence: US)
  Receive Date: 20150902
  Receipt Date: 20151202
  Transmission Date: 20160304
  Serious: Yes (Hospitalization)
  Sender: FDA-Public Use
  Company Number: US-TEVA-587501USA

PATIENT
  Age: 57 Year
  Sex: Female
  Weight: 59.02 kg

DRUGS (28)
  1. AMLODIPINE [Concomitant]
     Active Substance: AMLODIPINE BESYLATE
     Indication: HYPERTENSION
     Dosage: 5 MILLIGRAM DAILY;
     Route: 048
     Dates: start: 20140901, end: 20150522
  2. CALCIUM CARBONATE. [Concomitant]
     Active Substance: CALCIUM CARBONATE
     Indication: SUPPLEMENTATION THERAPY
     Dosage: 2 DOSAGE FORMS DAILY; 500/1250 MG
     Route: 048
     Dates: start: 20120201
  3. FISH OIL [Concomitant]
     Active Substance: FISH OIL
     Indication: SUPPLEMENTATION THERAPY
     Dosage: 1000 MILLIGRAM DAILY;
     Route: 048
     Dates: start: 20141201
  4. PACLITAXEL. [Suspect]
     Active Substance: PACLITAXEL
     Indication: TRIPLE NEGATIVE BREAST CANCER
     Route: 042
     Dates: start: 20150319, end: 20150625
  5. EMLA [Concomitant]
     Active Substance: LIDOCAINE\PRILOCAINE
     Indication: PROPHYLAXIS
     Dosage: PRIOR TO CHEMO
     Route: 061
     Dates: start: 20150318
  6. ZOFRAN [Concomitant]
     Active Substance: ONDANSETRON HYDROCHLORIDE
     Indication: NAUSEA
  7. FOSAPREPITANT DIMEGLUMINE [Concomitant]
     Active Substance: FOSAPREPITANT DIMEGLUMINE
     Indication: PROPHYLACTIC CHEMOTHERAPY
     Dosage: WITH CHEMO
     Route: 042
     Dates: start: 20150319
  8. MELATONIN [Concomitant]
     Active Substance: MELATONIN
     Indication: INSOMNIA
     Route: 048
     Dates: start: 20150409
  9. AQUAPHOR HEALING [Concomitant]
     Active Substance: PETROLATUM
     Indication: DRY SKIN
     Route: 061
     Dates: start: 20150426
  10. CIPROFLOXACIN. [Concomitant]
     Active Substance: CIPROFLOXACIN
     Indication: CYSTITIS
  11. FLUCONAZOLE. [Concomitant]
     Active Substance: FLUCONAZOLE
     Indication: ORAL CANDIDIASIS
     Dosage: 100 MILLIGRAM DAILY; QD X 14
     Route: 048
     Dates: start: 20150505, end: 20150512
  12. RANITIDINE [Concomitant]
     Active Substance: RANITIDINE\RANITIDINE HYDROCHLORIDE
     Indication: PROPHYLACTIC CHEMOTHERAPY
     Dosage: P1-P12 WITH CHEMO
     Route: 041
     Dates: start: 20150319
  13. DOXORUBICIN [Suspect]
     Active Substance: DOXORUBICIN
     Indication: TRIPLE NEGATIVE BREAST CANCER
     Route: 042
     Dates: start: 20150709
  14. CARBOPLATIN. [Suspect]
     Active Substance: CARBOPLATIN
     Indication: TRIPLE NEGATIVE BREAST CANCER
     Dosage: DAY 1 OF 21 DAY CYCLE
     Route: 042
     Dates: start: 20150319, end: 20150521
  15. ABT-888 (VELIPARIB) [Suspect]
     Active Substance: VELIPARIB
     Indication: TRIPLE NEGATIVE BREAST CANCER
     Route: 048
     Dates: start: 20150319, end: 20150624
  16. PROCHLORPERAZINE MALEATE. [Concomitant]
     Active Substance: PROCHLORPERAZINE MALEATE
     Indication: PROPHYLAXIS OF NAUSEA AND VOMITING
     Route: 048
     Dates: start: 20150318
  17. KLACKS SOLUTION [Concomitant]
     Indication: STOMATITIS
     Dosage: 5 ML DAILY;
     Route: 048
     Dates: start: 20150323
  18. IMODIUM [Concomitant]
     Active Substance: LOPERAMIDE HYDROCHLORIDE
     Indication: DIARRHOEA
     Route: 048
     Dates: start: 20150415
  19. CIPROFLOXACIN. [Concomitant]
     Active Substance: CIPROFLOXACIN
     Indication: DYSURIA
     Dosage: 500 MILLIGRAM DAILY;
     Route: 048
  20. PROPANOLOL [Concomitant]
     Active Substance: PROPRANOLOL HYDROCHLORIDE
     Indication: HYPERTENSION
     Dosage: 80 MILLIGRAM DAILY;
     Route: 048
     Dates: start: 20130901
  21. TYLENOL [Concomitant]
     Active Substance: ACETAMINOPHEN
     Indication: PAIN
     Dates: start: 20150327
  22. CYCLOPHOSPHAMIDE. [Suspect]
     Active Substance: CYCLOPHOSPHAMIDE
     Indication: TRIPLE NEGATIVE BREAST CANCER
     Route: 042
     Dates: start: 20150709
  23. OMEPRAZOLE. [Concomitant]
     Active Substance: OMEPRAZOLE
     Indication: DYSPEPSIA
     Dosage: 20 MILLIGRAM DAILY;
     Route: 048
     Dates: start: 20130901
  24. ZOFRAN [Concomitant]
     Active Substance: ONDANSETRON HYDROCHLORIDE
     Indication: PROPHYLAXIS OF NAUSEA AND VOMITING
     Dosage: 16 MG/KG DAILY; 1 TAB BID X 3 DAYS AFTER CHEMO
     Route: 048
     Dates: start: 20150318
  25. DEXAMETHASONE. [Concomitant]
     Active Substance: DEXAMETHASONE
     Indication: PROPHYLAXIS OF NAUSEA AND VOMITING
     Dosage: 4 MILLIGRAM DAILY; 1 TAB DAILY X 3 DAYS POST CHEMO
     Route: 048
     Dates: start: 20150318
  26. PALONOSETRON HYDROCHLORIDE. [Concomitant]
     Active Substance: PALONOSETRON HYDROCHLORIDE
     Indication: PROPHYLACTIC CHEMOTHERAPY
     Route: 042
     Dates: start: 20150319
  27. VITAMIN B12 [Concomitant]
     Active Substance: CYANOCOBALAMIN
     Indication: PERIPHERAL SENSORY NEUROPATHY
     Route: 048
     Dates: start: 20150413
  28. IMODIUM [Concomitant]
     Active Substance: LOPERAMIDE HYDROCHLORIDE
     Indication: ABDOMINAL PAIN

REACTIONS (3)
  - Urinary tract infection [Recovered/Resolved]
  - Enterocolitis infectious [Recovered/Resolved]
  - Febrile neutropenia [Recovered/Resolved]

NARRATIVE: CASE EVENT DATE: 20150725
